FAERS Safety Report 8477467-5 (Version None)
Quarter: 2012Q2

REPORT INFORMATION
  Report Type: 
  Country: None (occurrence: None)
  Receive Date: 20120629
  Receipt Date: 20120626
  Transmission Date: 20120825
  Serious: Yes (Other)
  Sender: FDA-Public Use
  Company Number: PHHY2012CA055202

PATIENT
  Sex: Female

DRUGS (1)
  1. DIOVAN [Suspect]

REACTIONS (6)
  - FALL [None]
  - ORAL HERPES [None]
  - DYSPNOEA [None]
  - HEADACHE [None]
  - TONGUE DISCOLOURATION [None]
  - LIP PAIN [None]
